FAERS Safety Report 9652867 (Version 1)
Quarter: 2013Q4

REPORT INFORMATION
  Report Type: Spontaneous
  Country: JP (occurrence: JP)
  Receive Date: 20131029
  Receipt Date: 20131029
  Transmission Date: 20140711
  Serious: Yes (Other)
  Sender: FDA-Public Use
  Company Number: JP-ROXANE LABORATORIES, INC.-2013-RO-01729RO

PATIENT
  Age: 8 Year
  Sex: Female

DRUGS (10)
  1. CYCLOPHOSPHAMIDE TABLETS USP [Suspect]
     Indication: DIFFUSE LARGE B-CELL LYMPHOMA
  2. CYCLOPHOSPHAMIDE TABLETS USP [Suspect]
  3. VINBLASTINE [Suspect]
     Indication: DIFFUSE LARGE B-CELL LYMPHOMA
  4. PIRARUBICIN [Suspect]
     Indication: DIFFUSE LARGE B-CELL LYMPHOMA
  5. PIRARUBICIN [Suspect]
  6. PREDNISOLONE [Suspect]
     Indication: DIFFUSE LARGE B-CELL LYMPHOMA
  7. RITUXIMAB [Suspect]
     Indication: DIFFUSE LARGE B-CELL LYMPHOMA
  8. METHOTREXATE [Suspect]
     Indication: DIFFUSE LARGE B-CELL LYMPHOMA
     Route: 037
  9. HYDROCORTISONE [Suspect]
     Indication: DIFFUSE LARGE B-CELL LYMPHOMA
     Route: 037
  10. IMMUNOGLOBULIN [Concomitant]
     Indication: ATAXIA TELANGIECTASIA
     Route: 042

REACTIONS (6)
  - Neutropenia [Unknown]
  - Oral mucosa erosion [Unknown]
  - Gastrointestinal toxicity [Unknown]
  - Bacterial infection [Unknown]
  - Condition aggravated [Unknown]
  - Haematotoxicity [Unknown]
